FAERS Safety Report 22807867 (Version 10)
Quarter: 2024Q1

REPORT INFORMATION
  Report Type: Other
  Country: DE (occurrence: DE)
  Receive Date: 20230810
  Receipt Date: 20240308
  Transmission Date: 20240410
  Serious: Yes (Life-Threatening, Other)
  Sender: FDA-Public Use
  Company Number: DE-MACLEODS PHARMACEUTICALS US LTD-MAC2018018675

PATIENT

DRUGS (94)
  1. LIDOCAINE [Suspect]
     Active Substance: LIDOCAINE
     Indication: Local anaesthesia
     Dosage: UNK
     Route: 058
     Dates: start: 20230913, end: 20230913
  2. LIDOCAINE [Suspect]
     Active Substance: LIDOCAINE
     Dosage: UNK (INJECTION)
     Route: 058
     Dates: start: 20000913, end: 20000913
  3. NORTRIPTYLINE [Suspect]
     Active Substance: NORTRIPTYLINE
     Indication: Coronary artery disease
     Dosage: UNK ( ENDOTRACHEOPULMONARY INSTILLATION, SUSPENSION)
     Route: 042
     Dates: start: 20000913, end: 20000913
  4. NORTRIPTYLINE [Suspect]
     Active Substance: NORTRIPTYLINE
     Dosage: 75 MILLIGRAM, QD INJECTION
     Route: 042
     Dates: start: 20000913, end: 20000913
  5. NORTRIPTYLINE [Suspect]
     Active Substance: NORTRIPTYLINE
     Dosage: 75 MILLIGRAM, QD ENDOTRACHEOPULMONARY INSTILLATION, SUSPENSION
     Route: 042
     Dates: start: 20000913, end: 20000913
  6. OMEPRAZOLE [Suspect]
     Active Substance: OMEPRAZOLE
     Indication: Prophylaxis against gastrointestinal ulcer
     Dosage: 20 MILLIGRAM, QD (TABLET)
     Route: 048
     Dates: start: 20000820, end: 20000917
  7. OMEPRAZOLE [Suspect]
     Active Substance: OMEPRAZOLE
     Dosage: 20 MILLIGRAM, QD
     Route: 048
     Dates: start: 20000820, end: 20000917
  8. ASPIRIN [Suspect]
     Active Substance: ASPIRIN
     Indication: Coagulopathy
     Dosage: 100 MILLIGRAM, QD (ACETYLSALICYLIC ACID)
     Route: 048
     Dates: start: 20000828, end: 20000831
  9. ASPIRIN [Suspect]
     Active Substance: ASPIRIN
     Indication: Coagulopathy
     Dosage: 100 MILLIGRAM, QD, ASPIRIN 100 MG (ACETYLSALICYLIC ACID), TABLET
     Route: 048
     Dates: start: 20000914, end: 20000917
  10. DIAZEPAM [Suspect]
     Active Substance: DIAZEPAM
     Indication: Sedation
     Dosage: UNK, ( ENDOTRACHEOPULMONARY INSTILLATION, SUSPENSION, INJECTION, DESTIN, POWDER FOR SUSPENSION))
     Route: 042
     Dates: start: 20000913, end: 20000913
  11. DIAZEPAM [Suspect]
     Active Substance: DIAZEPAM
     Indication: Sedative therapy
  12. PLAVIX [Suspect]
     Active Substance: CLOPIDOGREL BISULFATE
     Indication: Thrombosis prophylaxis
     Dosage: 1 DOSAGE FORM, QD, PLAVIX (CLOPIDOGREL,  POWDER FOR INFUSION)
     Route: 048
     Dates: start: 20000913, end: 20000917
  13. PLAVIX [Suspect]
     Active Substance: CLOPIDOGREL BISULFATE
     Indication: Coagulopathy
     Dosage: 4 DOSAGE FORM
     Route: 065
  14. PLAVIX [Suspect]
     Active Substance: CLOPIDOGREL BISULFATE
     Dosage: 1 DOSAGE FORM, QD (75 MG, 1 DOSE DAILY, POWDER FOR INFUSION)
     Route: 048
     Dates: start: 20000913, end: 20000917
  15. PLAVIX [Suspect]
     Active Substance: CLOPIDOGREL BISULFATE
     Dosage: 75 MILLIGRAM, QD TABLET
     Route: 048
     Dates: start: 20000913, end: 20000917
  16. VIOXX [Suspect]
     Active Substance: ROFECOXIB
     Indication: Rheumatic disorder
     Dosage: 25 MILLIGRAM, QD, VIOXX (ROFECOXIB)1 DOSE DAILY
     Route: 048
     Dates: start: 20000907, end: 20000917
  17. VIOXX [Suspect]
     Active Substance: ROFECOXIB
     Dosage: 250 MILLIGRAM
     Route: 065
  18. CLONIDINE [Suspect]
     Active Substance: CLONIDINE
     Indication: Coronary artery disease
     Dosage: UNK, CATAPRESAN (CLONIDINE)
     Route: 042
     Dates: start: 20000913, end: 20000913
  19. CLONIDINE [Suspect]
     Active Substance: CLONIDINE
     Indication: Hypertension
     Dosage: UNK
     Route: 065
  20. XYLOCAINE [Suspect]
     Active Substance: LIDOCAINE HYDROCHLORIDE
     Indication: Local anaesthesia
     Dosage: UNK, XYLOCAINE (LIDOCAINE HYDROCHLORIDE)
     Route: 058
     Dates: start: 20000913, end: 20000913
  21. UNSPECIFIED INGREDIENT [Suspect]
     Active Substance: UNSPECIFIED INGREDIENT
     Indication: Coronary artery disease
     Dosage: UNK
     Route: 042
     Dates: start: 20000913, end: 20000913
  22. LORMETAZEPAM [Suspect]
     Active Substance: LORMETAZEPAM
     Indication: Sedation
     Dosage: 2 DOSAGE FORM, QD, NOCTAMID (LORMETAZEPAM) (2 DF, 1 DOSE DAILY DOSE UNIT: DOSAGE FORM) (1 DOSE DAILY
     Route: 048
     Dates: start: 20000913, end: 20000913
  23. LORMETAZEPAM [Suspect]
     Active Substance: LORMETAZEPAM
     Indication: Sedative therapy
     Dosage: 2 DOSAGE FORM, QD
     Route: 065
  24. GLYBURIDE [Suspect]
     Active Substance: GLYBURIDE
     Indication: Diabetes mellitus
     Dosage: 3 DOSAGE FORM ( POWDER FOR INFUSION)
     Route: 048
     Dates: start: 20000820, end: 20000917
  25. NOREPINEPHRINE [Suspect]
     Active Substance: NOREPINEPHRINE\NOREPINEPHRINE BITARTRATE
     Indication: Coronary artery disease
     Dosage: 3 DOSAGE FORM
     Route: 042
     Dates: start: 20000913, end: 20000913
  26. NOREPINEPHRINE [Suspect]
     Active Substance: NOREPINEPHRINE\NOREPINEPHRINE BITARTRATE
     Indication: Local anaesthesia
     Dosage: 8 MILLIGRAM, QD
     Route: 042
  27. NOREPINEPHRINE [Suspect]
     Active Substance: NOREPINEPHRINE\NOREPINEPHRINE BITARTRATE
     Dosage: UNK
     Route: 065
  28. NOVALGIN (METAMIZOLE SODIUM) [Suspect]
     Active Substance: METAMIZOLE SODIUM
     Indication: Pain
     Dosage: 20 DROP, QD, NOVALGIN (METAMIZOLE SODIUM), EAR/EYE/NOSE DROPS, SOLUTION
     Route: 048
     Dates: start: 20000820, end: 20000917
  29. NOVALGIN (METAMIZOLE SODIUM) [Suspect]
     Active Substance: METAMIZOLE SODIUM
     Indication: General symptom
     Dosage: 560 DROP
     Route: 048
  30. NOVALGIN (METAMIZOLE SODIUM) [Suspect]
     Active Substance: METAMIZOLE SODIUM
     Dosage: 560 DROP
     Route: 065
  31. CLONIDINE HYDROCHLORIDE [Suspect]
     Active Substance: CLONIDINE HYDROCHLORIDE
     Indication: Coronary artery disease
     Dosage: UNK
     Route: 042
     Dates: start: 20000913, end: 20000913
  32. CLONIDINE HYDROCHLORIDE [Suspect]
     Active Substance: CLONIDINE HYDROCHLORIDE
     Indication: Hypertension
     Dosage: UNK
     Route: 042
  33. ESTRIOL [Suspect]
     Active Substance: ESTRIOL
     Indication: Vulvovaginal disorder
     Dosage: 1 DOSAGE FORM, QD, ORTHO-GYNEST (ESTRIOL) (PREVIOUSLY INGREDIENT THAT WAS CODED IS ESTRIOL SUCCINATE
     Route: 067
     Dates: start: 20000820, end: 20000906
  34. DALTEPARIN SODIUM [Suspect]
     Active Substance: DALTEPARIN SODIUM
     Indication: Coagulopathy
     Dosage: UNK, FRAGMIN P (HEPARIN-FRACTION, SODIUM SALT)
     Route: 058
     Dates: start: 20000820, end: 20000917
  35. DALTEPARIN SODIUM [Suspect]
     Active Substance: DALTEPARIN SODIUM
     Indication: Thrombosis prophylaxis
     Dosage: UNK
     Route: 065
  36. DALTEPARIN SODIUM [Suspect]
     Active Substance: DALTEPARIN SODIUM
     Dosage: UNK
     Route: 058
     Dates: start: 20000820, end: 20000917
  37. DALTEPARIN SODIUM [Suspect]
     Active Substance: DALTEPARIN SODIUM
     Dosage: UNK
  38. CLEMASTINE FUMARATE [Suspect]
     Active Substance: CLEMASTINE FUMARATE
     Indication: Pemphigoid
     Dosage: 4 DOSAGE FORM, QD, TAVEGIL (CLEMASTINE) (PREVIOUSLY INGREDIENT THAT WAS CODED IS CLEMASTINE OR CLEMA
     Route: 048
     Dates: start: 20000820, end: 20000828
  39. CLEMASTINE FUMARATE [Suspect]
     Active Substance: CLEMASTINE FUMARATE
     Dosage: 2 DOSAGE FORM, QD
     Route: 048
     Dates: start: 20000820, end: 20000828
  40. PREDNISOLONE [Suspect]
     Active Substance: PREDNISOLONE
     Indication: Dermatitis bullous
     Dosage: 60 MILLIGRAM, QD (TABLET)
     Route: 048
     Dates: start: 20000820, end: 20000917
  41. PREDNISOLONE [Suspect]
     Active Substance: PREDNISOLONE
     Indication: Pemphigoid
     Dosage: 80 MILLIGRAM, QD (TABLET)
     Route: 048
  42. PREDNISOLONE [Suspect]
     Active Substance: PREDNISOLONE
     Dosage: 50 MILLIGRAM, QD
     Route: 048
  43. PREDNISOLONE [Suspect]
     Active Substance: PREDNISOLONE
     Dosage: 40 MILLIGRAM, QD (TABLET)
     Route: 048
  44. PREDNISOLONE [Suspect]
     Active Substance: PREDNISOLONE
     Dosage: 60 MILLIGRAM, QD (TABLET)
     Route: 048
  45. PREDNISOLONE [Suspect]
     Active Substance: PREDNISOLONE
     Dosage: UNK
     Route: 048
     Dates: start: 20000820, end: 20000917
  46. PREDNISOLONE [Suspect]
     Active Substance: PREDNISOLONE
     Dosage: 60 MILLIGRAM, QD
     Route: 048
  47. PREDNISOLONE [Suspect]
     Active Substance: PREDNISOLONE
     Dosage: 80 MILLIGRAM, QD (TABLET)
     Route: 048
  48. PREDNISOLONE [Suspect]
     Active Substance: PREDNISOLONE
     Dosage: 50 MILLIGRAM, QD
     Route: 048
  49. PREDNISOLONE [Suspect]
     Active Substance: PREDNISOLONE
     Dosage: 40 MILLIGRAM, QD (TABLET)
     Route: 048
  50. PREDNISOLONE [Suspect]
     Active Substance: PREDNISOLONE
     Dosage: UNK
     Route: 065
  51. INSULIN NOS [Suspect]
     Active Substance: INSULIN NOS
     Indication: Diabetes mellitus
     Dosage: UNK (SUBCUTANEOUS EXCEPT ON 13 SEP 2000 WHEN GIVEN INTRAVENOUSLY;  POWDER FOR SUSPENSION)
     Route: 058
     Dates: start: 20000820, end: 20000917
  52. INSULIN NOS [Suspect]
     Active Substance: INSULIN NOS
     Dosage: UNK (SUBCUTANEOUS EXCEPT ON 13 SEP 2000 WHEN GIVEN INTRAVENOUSLY;  POWDER FOR SUSPENSION)
     Route: 042
     Dates: start: 20000913, end: 20000913
  53. TORSEMIDE [Suspect]
     Active Substance: TORSEMIDE
     Indication: Cardiac failure
     Dosage: 5 MILLIGRAM, QD, UNAT (TORASEMIDE), TABLET
     Route: 048
     Dates: start: 20000820, end: 20000917
  54. TORSEMIDE [Suspect]
     Active Substance: TORSEMIDE
     Dosage: 140 MILLIGRAM
     Route: 065
  55. ISOSORBIDE MONONITRATE [Suspect]
     Active Substance: ISOSORBIDE MONONITRATE
     Indication: Angina pectoris
     Dosage: 1 DOSAGE FORM, QD, MONO MACK (ISOSORBIDE MONONITRATE) (POWDER FOR INFUSION)
     Route: 048
     Dates: start: 20000820, end: 20000917
  56. MOLSIDOMINE [Suspect]
     Active Substance: MOLSIDOMINE
     Indication: Coronary artery disease
     Dosage: 8 MILLIGRAM, QD,  1 DOSAGE FORM DAILY
     Route: 048
     Dates: start: 20000820, end: 20000914
  57. NOREPINEPHRINE [Suspect]
     Active Substance: NOREPINEPHRINE\NOREPINEPHRINE BITARTRATE
     Indication: Coronary artery disease
     Dosage: 3 DOSAGE FORM
     Route: 042
     Dates: start: 20000913, end: 20000913
  58. NOREPINEPHRINE [Suspect]
     Active Substance: NOREPINEPHRINE\NOREPINEPHRINE BITARTRATE
     Indication: Diabetes mellitus
  59. FENTANYL [Suspect]
     Active Substance: FENTANYL\FENTANYL CITRATE
     Indication: Pain
     Dosage: 1 DOSAGE FORM, DUROGESIC (FENTANYL ) TRANSDERMAL PATCH
     Route: 062
     Dates: start: 20000820, end: 20000916
  60. FENTANYL [Suspect]
     Active Substance: FENTANYL\FENTANYL CITRATE
     Indication: Dermatitis bullous
     Dosage: 50 MICROGRAM, Q.H. (MICROGRAMS PER INHALATION, 72 QH)
     Route: 062
  61. FENTANYL [Suspect]
     Active Substance: FENTANYL\FENTANYL CITRATE
     Dosage: 125 MICROGRAM, Q.H. (MICROGRAMS PER INHALATION)
     Route: 062
  62. FENTANYL [Suspect]
     Active Substance: FENTANYL\FENTANYL CITRATE
     Dosage: 150 MICROGRAM, Q.H. (MICROGRAMS PER INHALATION, 72 QH)
     Route: 062
     Dates: start: 20000820, end: 20000916
  63. FENTANYL [Suspect]
     Active Substance: FENTANYL\FENTANYL CITRATE
     Dosage: UNK
     Route: 048
     Dates: start: 20000820, end: 20000917
  64. CLONIDINE HYDROCHLORIDE [Suspect]
     Active Substance: CLONIDINE HYDROCHLORIDE
     Indication: Coronary artery disease
     Dosage: 8 MILLIGRAM, QD
     Route: 065
     Dates: start: 20000820, end: 20000914
  65. CLONIDINE HYDROCHLORIDE [Suspect]
     Active Substance: CLONIDINE HYDROCHLORIDE
     Indication: Hypertension
     Dosage: UNK
     Route: 042
     Dates: start: 20000913, end: 20000913
  66. CLONIDINE HYDROCHLORIDE [Suspect]
     Active Substance: CLONIDINE HYDROCHLORIDE
     Dosage: UNK
     Route: 042
  67. DEXTROSE [Concomitant]
     Active Substance: DEXTROSE\DEXTROSE MONOHYDRATE
     Indication: Cardiovascular disorder
     Dosage: UNK ( ENDOTRACHEOPULMONARY INSTILLATION, SUSPENSION)
     Route: 042
     Dates: start: 20000913, end: 20000913
  68. DEXTROSE [Concomitant]
     Active Substance: DEXTROSE\DEXTROSE MONOHYDRATE
     Indication: Diabetes mellitus
     Dosage: UNK
     Route: 065
  69. DEXTROSE [Concomitant]
     Active Substance: DEXTROSE\DEXTROSE MONOHYDRATE
     Dosage: UNK
     Route: 065
  70. DEXTROSE [Concomitant]
     Active Substance: DEXTROSE\DEXTROSE MONOHYDRATE
     Dosage: UNK (INJECTION)
     Dates: start: 20000913, end: 20000913
  71. COTRIM [Concomitant]
     Active Substance: SULFAMETHOXAZOLE\TRIMETHOPRIM
     Indication: Urinary tract infection
     Dosage: 1 DOSAGE FORM, QD, COTRIM
     Route: 048
     Dates: start: 20000916, end: 20000917
  72. CALCIUM GLUCONATE [Concomitant]
     Active Substance: CALCIUM GLUCONATE
     Indication: Osteoporosis
     Dosage: 1 DOSAGE FORM, QD, CA LACTOGLUCONATE/ CARBONATE
     Route: 048
     Dates: start: 20000820, end: 20000917
  73. RINGERS SOLUTION [Concomitant]
     Active Substance: CALCIUM CHLORIDE\POTASSIUM CHLORIDE\SODIUM CHLORIDE
     Indication: Electrolyte depletion
     Dosage: UNK, RINGER^S SOLUTION (SODIUM CHLORIDE COMPOUND INJECTION)
     Route: 042
     Dates: start: 20000913, end: 20000914
  74. OMEPRAZOLE [Concomitant]
     Active Substance: OMEPRAZOLE
     Indication: Prophylaxis against gastrointestinal ulcer
     Dosage: 20 MILLIGRAM, QD, ANTRAMUPS (OMEPRAZOLE MAGNESIUM 1 DOSE DAILY)
     Route: 048
     Dates: start: 20000820, end: 20000917
  75. MOLSIDOMINE [Concomitant]
     Active Substance: MOLSIDOMINE
     Indication: Coronary artery disease
     Dosage: 1 DOSAGE FORM, QD, CORVATON RETARD (MOLSIDOMINE)
     Route: 048
     Dates: start: 20000820, end: 20000914
  76. Baxter Healthcare Ringers [Concomitant]
     Indication: Electrolyte depletion
     Dosage: UNK
     Route: 042
     Dates: start: 20000913, end: 20000914
  77. CALCIUM CHLORIDE [Concomitant]
     Active Substance: CALCIUM CHLORIDE
     Indication: Electrolyte depletion
     Dosage: UNK
     Route: 065
  78. CALCIUM CHLORIDE [Concomitant]
     Active Substance: CALCIUM CHLORIDE
     Indication: Fluid retention
     Dosage: UNK (INTRAVENOUS BOLUS)
     Route: 042
     Dates: start: 20000913, end: 20000914
  79. CALCIUM CHLORIDE [Concomitant]
     Active Substance: CALCIUM CHLORIDE
     Indication: Osteoporosis
     Dosage: UNK
     Route: 065
     Dates: start: 20000820, end: 20000917
  80. CALCIUM CHLORIDE [Concomitant]
     Active Substance: CALCIUM CHLORIDE
     Dosage: (INJECTION)UNK
     Route: 065
  81. CALCIUM CHLORIDE [Concomitant]
     Active Substance: CALCIUM CHLORIDE
     Dosage: (INJECTION)UNK
     Route: 065
  82. POTASSIUM CHLORIDE [Concomitant]
     Active Substance: POTASSIUM CHLORIDE
     Indication: Electrolyte depletion
     Dosage: UNK; POWDER FOR SUSPENSION
     Route: 042
     Dates: start: 20000913, end: 20000914
  83. POTASSIUM CHLORIDE [Concomitant]
     Active Substance: POTASSIUM CHLORIDE
     Indication: Fluid retention
     Dosage: UNK; POWDER FOR SUSPENSION
     Route: 065
  84. POTASSIUM CHLORIDE [Concomitant]
     Active Substance: POTASSIUM CHLORIDE
     Indication: Diabetes mellitus
     Dosage: UNK INJECTION
     Route: 042
     Dates: start: 20000913, end: 20000914
  85. POTASSIUM CHLORIDE [Concomitant]
     Active Substance: POTASSIUM CHLORIDE
     Dosage: UNK INJECTION
     Route: 065
  86. POTASSIUM CHLORIDE [Concomitant]
     Active Substance: POTASSIUM CHLORIDE
     Dosage: UNK (INJECTION)
     Route: 065
     Dates: start: 20000820, end: 20000917
  87. POTASSIUM CHLORIDE [Concomitant]
     Active Substance: POTASSIUM CHLORIDE
     Dosage: UNK INJECTION
     Route: 065
  88. SODIUM CHLORIDE [Concomitant]
     Active Substance: SODIUM CHLORIDE
     Indication: Electrolyte depletion
     Dosage: UNK ( ENDOTRACHEOPULMONARY INSTILLATION, SUSPENSION)
     Route: 042
     Dates: start: 20000913, end: 20000914
  89. CALCIUM CHLORIDE [Concomitant]
     Active Substance: CALCIUM CHLORIDE
     Indication: Electrolyte depletion
     Dosage: UNK
     Route: 042
     Dates: start: 20000913, end: 20000914
  90. CALCIUM [Concomitant]
     Active Substance: CALCIUM
     Indication: Osteoporosis
     Dosage: 1 DOSAGE FORM, QD (CALCIUM CITRATE)
     Route: 048
     Dates: start: 20000820, end: 20000917
  91. CALCIUM CITRATE [Concomitant]
     Active Substance: CALCIUM CITRATE
     Indication: Osteoporosis
     Dosage: 1 DOSAGE FORM, QD
     Route: 048
     Dates: start: 20000820, end: 20000917
  92. GLYBURIDE [Concomitant]
     Active Substance: GLYBURIDE
     Indication: Diabetes mellitus
     Dosage: 3 DOSAGE FORM
     Route: 048
     Dates: start: 20000820, end: 20000917
  93. PREDNISONE [Concomitant]
     Active Substance: PREDNISONE
     Indication: Product used for unknown indication
     Dosage: UNK
     Route: 065
  94. PREDNISONE [Concomitant]
     Active Substance: PREDNISONE
     Dosage: UNK
     Route: 065

REACTIONS (7)
  - Mucosal erosion [Recovered/Resolved]
  - Genital erosion [Recovered/Resolved]
  - Toxic epidermal necrolysis [Recovered/Resolved]
  - Blister [Recovered/Resolved]
  - Mouth ulceration [Recovered/Resolved]
  - Conjunctivitis [Recovered/Resolved]
  - Erythema [Recovered/Resolved]

NARRATIVE: CASE EVENT DATE: 20000916
